FAERS Safety Report 24833724 (Version 1)
Quarter: 2025Q1

REPORT INFORMATION
  Report Type: Report from Study
  Country: US (occurrence: US)
  Receive Date: 20250112
  Receipt Date: 20250112
  Transmission Date: 20250408
  Serious: Yes (Other)
  Sender: ABBVIE
  Company Number: US-ABBVIE-6073954

PATIENT
  Age: 13 Year
  Sex: Male

DRUGS (2)
  1. RINVOQ [Suspect]
     Active Substance: UPADACITINIB
     Indication: Dermatitis atopic
     Dosage: STRENGTH: 15 MG
     Route: 048
     Dates: start: 20240611
  2. RINVOQ [Suspect]
     Active Substance: UPADACITINIB
     Indication: Dermatitis atopic
     Dosage: STRENGTH: 15 MG
     Route: 048
     Dates: start: 202411

REACTIONS (7)
  - Skin operation [Unknown]
  - Post procedural infection [Unknown]
  - Skin exfoliation [Unknown]
  - Discomfort [Unknown]
  - Immunosuppression [Unknown]
  - Urticaria [Recovered/Resolved]
  - Memory impairment [Unknown]
